FAERS Safety Report 11142499 (Version 2)
Quarter: 2015Q2

REPORT INFORMATION
  Report Type: Report from Study
  Country: TH (occurrence: TH)
  Receive Date: 20150527
  Receipt Date: 20150601
  Transmission Date: 20150821
  Serious: Yes (Death)
  Sender: FDA-Public Use
  Company Number: PHHY2015TH063612

PATIENT
  Age: 33 Year
  Sex: Female
  Weight: 61.6 kg

DRUGS (1)
  1. GLIVEC [Suspect]
     Active Substance: IMATINIB MESYLATE
     Indication: CHRONIC MYELOID LEUKAEMIA
     Dosage: 400 MG
     Route: 065

REACTIONS (3)
  - Back pain [Unknown]
  - Acute kidney injury [Fatal]
  - Pain in extremity [Unknown]

NARRATIVE: CASE EVENT DATE: 20150521
